FAERS Safety Report 20513501 (Version 1)
Quarter: 2022Q1

REPORT INFORMATION
  Report Type: Spontaneous
  Country: US (occurrence: US)
  Receive Date: 20220224
  Receipt Date: 20220224
  Transmission Date: 20220423
  Serious: No
  Sender: FDA-Public Use
  Company Number: US-AMNEAL PHARMACEUTICALS-2021-AMRX-04278

PATIENT
  Sex: Female

DRUGS (6)
  1. RYTARY [Suspect]
     Active Substance: CARBIDOPA\LEVODOPA
     Indication: Product used for unknown indication
     Dosage: 48.75/195MG, 3 CAPSULES, 4X/DAY (6AM, 12PM, 6PM, AND 12AM)
     Route: 048
     Dates: start: 2021, end: 20211014
  2. RYTARY [Suspect]
     Active Substance: CARBIDOPA\LEVODOPA
     Dosage: 48.75/195MG, 13 CAPSULES DAILY, 03 CAPS AT 6AM, 12PM, 6PM, 12AM AND 1 CAP THROUGHOUT THE DAY
     Route: 048
     Dates: start: 20211014
  3. RYTARY [Suspect]
     Active Substance: CARBIDOPA\LEVODOPA
     Dosage: 48.75/195MG, 10 CAPSULES, DAILY (2 CAPSULES AT 6AM AND 6PM, TAKE 3 CAPSULES AT NOON AND AT BEDTIME)
     Route: 048
     Dates: end: 20201003
  4. RYTARY [Suspect]
     Active Substance: CARBIDOPA\LEVODOPA
     Dosage: 48.75/195MG, 10 CAPSULES, DAILY (2 CAPSULES AT 6AM AND 6PM, TAKE 3 CAPSULES AT NOON AND AT BEDTIME)
     Route: 048
     Dates: end: 20210430
  5. RYTARY [Suspect]
     Active Substance: CARBIDOPA\LEVODOPA
     Dosage: 48.75/195MG, 3 CAPSULES, 4X/DAY (6AM, 12PM, 6PM, AND 12AM)
     Route: 048
     Dates: start: 20210430, end: 20210504
  6. RYTARY [Suspect]
     Active Substance: CARBIDOPA\LEVODOPA
     Dosage: 23.75/95MG, 4 CAPSULES, MORNING (TO REPLACE MORNING DOSE)
     Route: 048
     Dates: start: 20210504, end: 20210504

REACTIONS (1)
  - Therapeutic response shortened [Unknown]

NARRATIVE: CASE EVENT DATE: 20210101
